FAERS Safety Report 6609433-6 (Version None)
Quarter: 2010Q1

REPORT INFORMATION
  Report Type: 
  Country: None (occurrence: None)
  Receive Date: 20100302
  Receipt Date: 20100225
  Transmission Date: 20100710
  Serious: Yes (Hospitalization)
  Sender: FDA-Public Use
  Company Number: DE-WYE-G05502610

PATIENT
  Sex: Male

DRUGS (1)
  1. TAZOBAC EF [Suspect]
     Indication: C-REACTIVE PROTEIN INCREASED
     Route: 042

REACTIONS (5)
  - APPLICATION SITE VESICLES [None]
  - INFUSION SITE EXFOLIATION [None]
  - INFUSION SITE EXTRAVASATION [None]
  - NEUTROPENIA [None]
  - REACTIVE PSYCHOSIS [None]
